FAERS Safety Report 12909652 (Version 2)
Quarter: 2016Q4

REPORT INFORMATION
  Report Type: Spontaneous
  Country: IT (occurrence: IT)
  Receive Date: 20161104
  Receipt Date: 20161110
  Transmission Date: 20170207
  Serious: Yes (Other)
  Sender: FDA-Public Use
  Company Number: IT-TEVA-708182ACC

PATIENT
  Age: 31 Year
  Sex: Male

DRUGS (10)
  1. SELEGILINE [Concomitant]
     Active Substance: SELEGILINE
     Indication: DOPAMINERGIC DRUG THERAPY
  2. ENTACAPONE. [Concomitant]
     Active Substance: ENTACAPONE
     Indication: DOPAMINERGIC DRUG THERAPY
  3. DOPAMINE [Concomitant]
     Active Substance: DOPAMINE\DOPAMINE HYDROCHLORIDE
     Indication: PRODUCT USED FOR UNKNOWN INDICATION
  4. CARBIDOPA. [Concomitant]
     Active Substance: CARBIDOPA
     Indication: DOPAMINERGIC DRUG THERAPY
  5. PRAMIPEXOLE. [Suspect]
     Active Substance: PRAMIPEXOLE
     Indication: AUTOSOMAL CHROMOSOME ANOMALY
     Dosage: .03 MICROGRAM/KG DAILY;
  6. SAPROPTERIN [Concomitant]
     Active Substance: SAPROPTERIN
     Indication: PRODUCT USED FOR UNKNOWN INDICATION
     Route: 065
  7. PRAMIPEXOLE. [Suspect]
     Active Substance: PRAMIPEXOLE
     Indication: TETRAHYDROBIOPTERIN DEFICIENCY
  8. LEVO-TRYPTOPHAN [Concomitant]
     Indication: PRODUCT USED FOR UNKNOWN INDICATION
  9. LEVODOPA [Concomitant]
     Active Substance: LEVODOPA
     Indication: DOPAMINERGIC DRUG THERAPY
     Route: 065
  10. OXITRIPTAN [Concomitant]
     Active Substance: OXITRIPTAN
     Route: 065

REACTIONS (3)
  - Gambling disorder [Unknown]
  - Oncologic complication [Unknown]
  - Hyperprolactinaemia [Unknown]
